FAERS Safety Report 5621062-X (Version None)
Quarter: 2008Q1

REPORT INFORMATION
  Report Type: 
  Country: None (occurrence: None)
  Receive Date: 20080208
  Receipt Date: 20080131
  Transmission Date: 20080703
  Serious: Yes (Other)
  Sender: FDA-Public Use
  Company Number: GB-PFIZER INC-2008011102

PATIENT
  Age: 39 Year
  Sex: Male

DRUGS (7)
  1. DOXAZOSIN [Suspect]
     Route: 048
  2. AMLODIPINE [Suspect]
  3. METFORMIN HCL [Suspect]
  4. ASPIRIN [Suspect]
  5. DEXTROSE [Concomitant]
     Route: 042
  6. INSULIN [Concomitant]
  7. POTASSIUM CHLORIDE [Concomitant]

REACTIONS (3)
  - BLOOD GLUCOSE ABNORMAL [None]
  - DRUG TOXICITY [None]
  - HYPOTENSION [None]
